FAERS Safety Report 20376786 (Version 2)
Quarter: 2022Q2

REPORT INFORMATION
  Report Type: Other
  Country: US (occurrence: None)
  Receive Date: 20220125
  Receipt Date: 20220429
  Transmission Date: 20220721
  Serious: Yes (Other)
  Sender: FDA-Public Use
  Company Number: US-ROCHE-3005512

PATIENT
  Age: 54 Year
  Sex: Female
  Weight: 104.42 kg

DRUGS (1)
  1. OCREVUS [Suspect]
     Active Substance: OCRELIZUMAB
     Indication: Relapsing-remitting multiple sclerosis
     Dosage: THEN 600 MG EVERY 6 MONTHS; DATE OF TREATMENT: 2021-07-23, 2021-02-05, 2021-02-19, 2021-02-05,
     Route: 042
     Dates: start: 20210205

REACTIONS (3)
  - Multiple sclerosis [Unknown]
  - COVID-19 [Recovered/Resolved]
  - Vaccination failure [Unknown]

NARRATIVE: CASE EVENT DATE: 20211230
